FAERS Safety Report 11944460 (Version 1)
Quarter: 2016Q1

REPORT INFORMATION
  Report Type: Other
  Country: JP (occurrence: JP)
  Receive Date: 20160125
  Receipt Date: 20160125
  Transmission Date: 20160526
  Serious: Yes (Hospitalization)
  Sender: FDA-Public Use
  Company Number: JP-LUPIN PHARMACEUTICALS INC.-2016-00381

PATIENT
  Age: 62 Year
  Sex: Male

DRUGS (3)
  1. IMIPRAMINE [Suspect]
     Active Substance: IMIPRAMINE
     Dosage: 175 MG
     Route: 065
  2. IMIPRAMINE [Suspect]
     Active Substance: IMIPRAMINE
     Indication: AFFECTIVE DISORDER
     Dosage: 100 MG
     Route: 065
  3. LITHIUM CARBONATE. [Suspect]
     Active Substance: LITHIUM CARBONATE
     Indication: AFFECTIVE DISORDER
     Dosage: 600 MG
     Route: 065

REACTIONS (2)
  - Serotonin syndrome [Recovered/Resolved]
  - Neuroleptic malignant syndrome [Recovered/Resolved]
